FAERS Safety Report 20647858 (Version 2)
Quarter: 2022Q2

REPORT INFORMATION
  Report Type: Report from Study
  Country: US (occurrence: US)
  Receive Date: 20220329
  Receipt Date: 20220608
  Transmission Date: 20220721
  Serious: Yes (Congenital Anomaly, Other)
  Sender: FDA-Public Use
  Company Number: US-ViiV Healthcare Limited-US2022GSK046729

PATIENT

DRUGS (5)
  1. ABACAVIR SULFATE\DOLUTEGRAVIR SODIUM\LAMIVUDINE [Suspect]
     Active Substance: ABACAVIR SULFATE\DOLUTEGRAVIR SODIUM\LAMIVUDINE
     Indication: HIV infection
     Dosage: 950 MG, QD
     Route: 064
     Dates: start: 20180810, end: 20200318
  2. FOLATE SUPPLEMENT [Concomitant]
     Indication: Product used for unknown indication
     Route: 064
  3. ALCOHOL [Concomitant]
     Active Substance: ALCOHOL
     Indication: Product used for unknown indication
     Route: 064
  4. TOBACCO LEAF [Concomitant]
     Active Substance: TOBACCO LEAF
     Indication: Product used for unknown indication
     Route: 064
  5. CANNABIS SATIVA SUBSP. INDICA TOP [Concomitant]
     Active Substance: CANNABIS SATIVA SUBSP. INDICA TOP
     Indication: Product used for unknown indication
     Route: 064

REACTIONS (4)
  - Atrial septal defect [Unknown]
  - Laryngomalacia [Recovered/Resolved]
  - Intraventricular haemorrhage [Unknown]
  - Premature baby [Unknown]

NARRATIVE: CASE EVENT DATE: 20200901
